FAERS Safety Report 7515093-2 (Version None)
Quarter: 2011Q2

REPORT INFORMATION
  Report Type: 
  Country: None (occurrence: None)
  Receive Date: 20110601
  Receipt Date: 20090306
  Transmission Date: 20111010
  Serious: Yes (Hospitalization, Other)
  Sender: FDA-Public Use
  Company Number: US-BAYER-2011-009756

PATIENT
  Age: 80 Year
  Sex: Female
  Weight: 67 kg

DRUGS (12)
  1. ATACAND [Concomitant]
  2. ZOCOR [Concomitant]
  3. ACETYLSALICYLIC ACID SRT [Concomitant]
     Dosage: 325 MG, QD
  4. LASIX [Concomitant]
     Dosage: UNK
     Route: 042
     Dates: start: 20050728, end: 20050728
  5. DIOVAN [Concomitant]
  6. MANNITOL [Concomitant]
     Dosage: UNK
     Route: 042
     Dates: start: 20050728, end: 20050728
  7. POTASSIUM CHLORIDE [Concomitant]
     Dosage: UNK
     Route: 042
     Dates: start: 20050728, end: 20050728
  8. TRASYLOL [Suspect]
     Indication: CORONARY ARTERY BYPASS
     Dosage: 200 ML, THEN INFUSION AT 50 ML PER HOUR
     Route: 042
     Dates: start: 20050728, end: 20050728
  9. TOPROL-XL [Concomitant]
     Dosage: 100 MG, QD
     Route: 048
  10. ZINACEF [Concomitant]
     Dosage: UNK
     Route: 042
     Dates: start: 20050728, end: 20050728
  11. HEPARIN [Concomitant]
     Dosage: UNK
     Route: 042
     Dates: start: 20050728, end: 20050728
  12. COUMADIN [Concomitant]

REACTIONS (11)
  - PAIN [None]
  - INJURY [None]
  - MULTI-ORGAN FAILURE [None]
  - RENAL INJURY [None]
  - RENAL IMPAIRMENT [None]
  - EMOTIONAL DISTRESS [None]
  - ANXIETY [None]
  - FEAR [None]
  - RENAL FAILURE [None]
  - UNEVALUABLE EVENT [None]
  - STRESS [None]
